FAERS Safety Report 16492841 (Version 5)
Quarter: 2019Q3

REPORT INFORMATION
  Report Type: Spontaneous
  Country: CZ (occurrence: CZ)
  Receive Date: 20190628
  Receipt Date: 20190930
  Transmission Date: 20191004
  Serious: Yes (Death, Hospitalization, Other)
  Sender: FDA-Public Use
  Company Number: CZ-AUROBINDO-AUR-APL-2019-036214

PATIENT
  Sex: Male

DRUGS (16)
  1. CLARITHROMYCIN. [Suspect]
     Active Substance: CLARITHROMYCIN
     Dosage: UNK
     Route: 048
  2. SOLU-MEDROL [Suspect]
     Active Substance: METHYLPREDNISOLONE SODIUM SUCCINATE
     Indication: RENAL CANCER
     Dosage: 1 MILLIGRAM/KILOGRAM
     Route: 042
  3. SOLU-MEDROL [Suspect]
     Active Substance: METHYLPREDNISOLONE SODIUM SUCCINATE
     Dosage: 2 MG/KG, BID
     Route: 042
  4. CABOZANTINIB [Concomitant]
     Active Substance: CABOZANTINIB
     Indication: RENAL CANCER
     Dosage: UNK (2ND LINE)
     Route: 065
     Dates: start: 2018
  5. INFLIXIMAB [Concomitant]
     Active Substance: INFLIXIMAB
     Indication: PARAESTHESIA
     Dosage: 5 MILLIGRAM/KILOGRAM
     Route: 041
  6. CEFUROXIME. [Suspect]
     Active Substance: CEFUROXIME
     Indication: RENAL CANCER
     Dosage: UNK
     Route: 065
     Dates: start: 201812
  7. SOLU-MEDROL [Suspect]
     Active Substance: METHYLPREDNISOLONE SODIUM SUCCINATE
     Dosage: 2 MILLIGRAM/KILOGRAM (INCREASED)
     Route: 042
     Dates: start: 201812
  8. FLUCONAZOLE. [Suspect]
     Active Substance: FLUCONAZOLE
     Indication: RENAL CANCER
     Dosage: UNK
     Route: 065
     Dates: start: 201812
  9. ATEZOLIZUMAB. [Concomitant]
     Active Substance: ATEZOLIZUMAB
     Indication: RENAL CANCER
     Dosage: UNK
     Route: 065
  10. NIVOLUMAB [Concomitant]
     Active Substance: NIVOLUMAB
     Indication: RENAL CANCER
     Dosage: UNK
     Route: 065
     Dates: start: 201811
  11. SUNITINIB [Concomitant]
     Active Substance: SUNITINIB
     Indication: RENAL CANCER
     Dosage: UNK
     Route: 065
     Dates: start: 201711
  12. SOLU-MEDROL [Suspect]
     Active Substance: METHYLPREDNISOLONE SODIUM SUCCINATE
     Indication: BRONCHITIS
     Dosage: 1 MILLIGRAM/KILOGRAM
     Route: 042
     Dates: start: 201812
  13. SUMETROLIM [Suspect]
     Active Substance: SULFAMETHOXAZOLE\TRIMETHOPRIM
     Indication: RENAL CANCER
     Dosage: UNK
     Route: 065
     Dates: start: 201812
  14. METHYLPREDNISOLONE. [Concomitant]
     Active Substance: METHYLPREDNISOLONE
     Indication: PRODUCT USED FOR UNKNOWN INDICATION
     Dosage: UNK
     Route: 065
  15. CLARITHROMYCIN. [Suspect]
     Active Substance: CLARITHROMYCIN
     Indication: BRONCHITIS
     Dosage: UNK
     Route: 065
     Dates: start: 201812
  16. SUNITINIB [Concomitant]
     Active Substance: SUNITINIB
     Dosage: UNK
     Route: 065
     Dates: start: 20171108

REACTIONS (18)
  - Hypotension [Fatal]
  - Nervous system disorder [Not Recovered/Not Resolved]
  - Oxygen saturation decreased [Unknown]
  - Behaviour disorder [Not Recovered/Not Resolved]
  - Hyporeflexia [Unknown]
  - Drug ineffective [Fatal]
  - Neurological decompensation [Fatal]
  - Product use in unapproved indication [Unknown]
  - Areflexia [Unknown]
  - General physical health deterioration [Unknown]
  - Bulbar palsy [Unknown]
  - Death [Fatal]
  - Dyspnoea [Not Recovered/Not Resolved]
  - Bradycardia [Fatal]
  - Muscular weakness [Fatal]
  - Hemiparesis [Not Recovered/Not Resolved]
  - Guillain-Barre syndrome [Unknown]
  - Paraesthesia [Not Recovered/Not Resolved]

NARRATIVE: CASE EVENT DATE: 201812
